FAERS Safety Report 8262683-8 (Version None)
Quarter: 2012Q1

REPORT INFORMATION
  Report Type: 
  Country: None (occurrence: None)
  Receive Date: 20120327
  Receipt Date: 20080919
  Transmission Date: 20120608
  Serious: Yes (Death)
  Sender: FDA-Public Use
  Company Number: PHEH2008US02427

PATIENT
  Age: 28 Year
  Sex: Female

DRUGS (1)
  1. GLEEVEC [Suspect]
     Indication: ASTROCYTOMA
     Dosage: ORAL
     Route: 048
     Dates: start: 20071101

REACTIONS (1)
  - BRAIN NEOPLASM [None]
